FAERS Safety Report 18330444 (Version 2)
Quarter: 2022Q1

REPORT INFORMATION
  Report Type: Spontaneous
  Country: CH (occurrence: CH)
  Receive Date: 20200930
  Receipt Date: 20220203
  Transmission Date: 20220423
  Serious: Yes (Hospitalization, Other)
  Sender: FDA-Public Use
  Company Number: CH-SM-2020-15794

PATIENT
  Age: 29 Year
  Sex: Female

DRUGS (7)
  1. ACETAMINOPHEN [Suspect]
     Active Substance: ACETAMINOPHEN
     Dosage: EXACT PREPARATION NOT KNOWN 39 G IN TOTAL
     Route: 048
     Dates: start: 20160229, end: 20160229
  2. DICLOFENAC SODIUM [Suspect]
     Active Substance: DICLOFENAC SODIUM
     Dosage: IN TOTAL, OLFEN 75 MG
     Route: 048
     Dates: start: 20160229, end: 20160229
  3. MEFENAMIC ACID [Suspect]
     Active Substance: MEFENAMIC ACID
     Dosage: IN TOTAL
     Route: 048
     Dates: start: 20160229, end: 20160229
  4. PANTOPRAZOLE SODIUM [Suspect]
     Active Substance: PANTOPRAZOLE SODIUM
     Dosage: EXACT PREPARATION NOT KNOWN, 480 MG IN TOTAL
     Route: 048
  5. TRAMADOL [Suspect]
     Active Substance: TRAMADOL
     Dosage: 1 BOTTLE OF TRAMADOL 100 MG/ML IN TOTAL
     Route: 048
  6. TIZANIDINE [Suspect]
     Active Substance: TIZANIDINE
     Dosage: IN TOTAL
     Route: 048
     Dates: start: 20160229, end: 20160229
  7. FLUIMUCIL [Suspect]
     Active Substance: ACETYLCYSTEINE
     Route: 042
     Dates: start: 20160302, end: 20160302

REACTIONS (5)
  - Poisoning [Recovered/Resolved]
  - Drug-induced liver injury [Recovered/Resolved]
  - Vomiting [Recovered/Resolved]
  - Nausea [Recovered/Resolved]
  - Anaphylactoid reaction [Recovered/Resolved]

NARRATIVE: CASE EVENT DATE: 20160229
